FAERS Safety Report 24604138 (Version 1)
Quarter: 2024Q4

REPORT INFORMATION
  Report Type: Spontaneous
  Country: DE (occurrence: DE)
  Receive Date: 20241111
  Receipt Date: 20241111
  Transmission Date: 20250115
  Serious: Yes (Hospitalization)
  Sender: NOVARTIS
  Company Number: DE-ROCHE-2360074

PATIENT
  Age: 32 Year
  Sex: Male

DRUGS (45)
  1. CYCLOSPORINE [Suspect]
     Active Substance: CYCLOSPORINE
     Indication: Product used for unknown indication
     Dosage: 200 MG
     Route: 065
     Dates: start: 201806
  2. CYCLOSPORINE [Suspect]
     Active Substance: CYCLOSPORINE
     Dosage: 200 MG
     Route: 065
  3. TOCILIZUMAB [Suspect]
     Active Substance: TOCILIZUMAB
     Indication: Juvenile idiopathic arthritis
     Dosage: 162 MG, QW
     Route: 058
     Dates: start: 201801
  4. TOCILIZUMAB [Suspect]
     Active Substance: TOCILIZUMAB
     Dosage: 162 MG, QW
     Route: 058
  5. TOCILIZUMAB [Suspect]
     Active Substance: TOCILIZUMAB
     Dosage: 162 MG, QW
     Route: 058
     Dates: start: 201801, end: 201811
  6. REMICADE [Concomitant]
     Active Substance: INFLIXIMAB
     Indication: Product used for unknown indication
     Dosage: 200 MG
     Route: 065
     Dates: start: 200703
  7. REMICADE [Concomitant]
     Active Substance: INFLIXIMAB
     Dosage: 300 MG
     Route: 065
     Dates: start: 200907
  8. REMICADE [Concomitant]
     Active Substance: INFLIXIMAB
     Dosage: 300 MG
     Route: 065
  9. REMICADE [Concomitant]
     Active Substance: INFLIXIMAB
     Dosage: 300 MG
     Route: 065
     Dates: start: 201008
  10. REMICADE [Concomitant]
     Active Substance: INFLIXIMAB
     Dosage: 300 MG
     Route: 065
  11. REMICADE [Concomitant]
     Active Substance: INFLIXIMAB
     Dosage: 400 MG
     Route: 065
     Dates: start: 201109
  12. REMICADE [Concomitant]
     Active Substance: INFLIXIMAB
     Dosage: 400 MG
     Route: 065
  13. REMICADE [Concomitant]
     Active Substance: INFLIXIMAB
     Dosage: 400 MG
     Route: 065
  14. REMICADE [Concomitant]
     Active Substance: INFLIXIMAB
     Dosage: 600 MG
     Route: 065
     Dates: start: 201302
  15. REMICADE [Concomitant]
     Active Substance: INFLIXIMAB
     Dosage: 600 MG
     Route: 065
     Dates: start: 201301
  16. REMICADE [Concomitant]
     Active Substance: INFLIXIMAB
     Dosage: 600 MG
     Route: 065
  17. REMICADE [Concomitant]
     Active Substance: INFLIXIMAB
     Dosage: 600 MG
     Route: 065
  18. REMICADE [Concomitant]
     Active Substance: INFLIXIMAB
     Dosage: 600 MG
     Route: 065
     Dates: start: 201302, end: 201508
  19. METHOTREXATE [Concomitant]
     Active Substance: METHOTREXATE
     Indication: Product used for unknown indication
     Dosage: 10 MG
     Route: 065
     Dates: start: 200805
  20. METHOTREXATE [Concomitant]
     Active Substance: METHOTREXATE
     Dosage: 10 MG
     Route: 065
  21. METHOTREXATE [Concomitant]
     Active Substance: METHOTREXATE
     Dosage: 10 MG
     Route: 065
  22. METHOTREXATE [Concomitant]
     Active Substance: METHOTREXATE
     Dosage: 10 MG
     Route: 065
  23. METHOTREXATE [Concomitant]
     Active Substance: METHOTREXATE
     Dosage: 15 MG
     Route: 065
  24. METHOTREXATE [Concomitant]
     Active Substance: METHOTREXATE
     Dosage: 15 MG
     Route: 065
  25. METHOTREXATE [Concomitant]
     Active Substance: METHOTREXATE
     Dosage: 15 MG
     Route: 065
  26. METHOTREXATE [Concomitant]
     Active Substance: METHOTREXATE
     Dosage: 15 MG
     Route: 065
  27. METHOTREXATE [Concomitant]
     Active Substance: METHOTREXATE
     Dosage: 15 MG
     Route: 065
  28. METHOTREXATE [Concomitant]
     Active Substance: METHOTREXATE
     Dosage: 25 MG
     Route: 065
     Dates: start: 201301
  29. METHOTREXATE [Concomitant]
     Active Substance: METHOTREXATE
     Dosage: 25 MG
     Route: 058
  30. METHOTREXATE [Concomitant]
     Active Substance: METHOTREXATE
     Dosage: 25 MG
     Route: 058
  31. METHOTREXATE [Concomitant]
     Active Substance: METHOTREXATE
     Dosage: 25 MG
     Route: 058
  32. METHOTREXATE [Concomitant]
     Active Substance: METHOTREXATE
     Dosage: 25 MG
     Route: 058
  33. METHOTREXATE [Concomitant]
     Active Substance: METHOTREXATE
     Dosage: 25 MG
     Route: 058
  34. METHOTREXATE [Concomitant]
     Active Substance: METHOTREXATE
     Dosage: 25 MG
     Route: 058
  35. METHOTREXATE [Concomitant]
     Active Substance: METHOTREXATE
     Dosage: 25 MG
     Route: 058
  36. METHOTREXATE [Concomitant]
     Active Substance: METHOTREXATE
     Dosage: 25 MG
     Route: 058
  37. METHOTREXATE [Concomitant]
     Active Substance: METHOTREXATE
     Dosage: 25 MG
     Route: 058
  38. METHOTREXATE [Concomitant]
     Active Substance: METHOTREXATE
     Dosage: 25 MG
     Route: 058
     Dates: start: 201310, end: 201806
  39. HUMIRA [Concomitant]
     Active Substance: ADALIMUMAB
     Indication: Product used for unknown indication
     Dosage: 40 MG
     Route: 065
     Dates: start: 201508
  40. HUMIRA [Concomitant]
     Active Substance: ADALIMUMAB
     Dosage: 40 MG
     Route: 065
  41. HUMIRA [Concomitant]
     Active Substance: ADALIMUMAB
     Dosage: 40 MG
     Route: 065
  42. HUMIRA [Concomitant]
     Active Substance: ADALIMUMAB
     Dosage: 40 MG
     Route: 065
  43. HUMIRA [Concomitant]
     Active Substance: ADALIMUMAB
     Dosage: 40 MG
     Route: 065
  44. HUMIRA [Concomitant]
     Active Substance: ADALIMUMAB
     Dosage: 40 MG
     Route: 065
     Dates: start: 201508, end: 201801
  45. PREDNISOLONE [Concomitant]
     Active Substance: PREDNISOLONE
     Indication: Product used for unknown indication
     Dosage: UNK
     Route: 065

REACTIONS (1)
  - Mechanical ileus [Recovered/Resolved]

NARRATIVE: CASE EVENT DATE: 20181107
